FAERS Safety Report 8380950-4 (Version None)
Quarter: 2012Q2

REPORT INFORMATION
  Report Type: 
  Country: None (occurrence: None)
  Receive Date: 20120523
  Receipt Date: 20120516
  Transmission Date: 20120825
  Serious: Yes (Other)
  Sender: FDA-Public Use
  Company Number: PHHY2012FR042135

PATIENT
  Sex: Female

DRUGS (3)
  1. VALSARTAN  AND HYDROCHLOROTHIAZIDE [Suspect]
     Indication: HYPERTENSION
     Dosage: 1 DF (160 MG VALSAR AND 25 MG HYDROCHLO), UNK
  2. ASPIRIN [Concomitant]
     Dosage: 75 MG, DAILY
  3. PLAVIX [Concomitant]

REACTIONS (9)
  - AORTIC ARTERIOSCLEROSIS [None]
  - OCULAR ICTERUS [None]
  - DRY SKIN [None]
  - MYOCARDIAL INFARCTION [None]
  - CREATININE RENAL CLEARANCE DECREASED [None]
  - JAUNDICE [None]
  - URINE COLOUR ABNORMAL [None]
  - SKIN EXFOLIATION [None]
  - FATIGUE [None]
